FAERS Safety Report 12433058 (Version 2)
Quarter: 2016Q2

REPORT INFORMATION
  Report Type: Spontaneous
  Country: RU (occurrence: RU)
  Receive Date: 20160603
  Receipt Date: 20160610
  Transmission Date: 20160815
  Serious: Yes (Hospitalization)
  Sender: FDA-Public Use
  Company Number: RU-AMGEN-RUSSP2016048035

PATIENT
  Age: 11 Year
  Sex: Male

DRUGS (2)
  1. PROLIA [Suspect]
     Active Substance: DENOSUMAB
     Indication: PRODUCT USED FOR UNKNOWN INDICATION
     Dosage: 60 MG, QMO
     Route: 065
  2. ZOMET [Concomitant]

REACTIONS (8)
  - Blood parathyroid hormone decreased [Recovering/Resolving]
  - Oedema [Recovering/Resolving]
  - Blood creatinine increased [Recovering/Resolving]
  - Dyslipidaemia [Recovering/Resolving]
  - Hypercalcaemia [Recovering/Resolving]
  - Inappropriate schedule of drug administration [Unknown]
  - Blood urea increased [Recovering/Resolving]
  - Off label use [Unknown]

NARRATIVE: CASE EVENT DATE: 201212
